FAERS Safety Report 8372701-4 (Version None)
Quarter: 2012Q2

REPORT INFORMATION
  Report Type: 
  Country: None (occurrence: None)
  Receive Date: 20120521
  Receipt Date: 20120515
  Transmission Date: 20120825
  Serious: Yes (Other)
  Sender: FDA-Public Use
  Company Number: CA-SANOFI-AVENTIS-2012SA034865

PATIENT
  Age: 74 Year
  Sex: Male

DRUGS (10)
  1. ALFUZOSIN HCL [Suspect]
     Indication: URINARY TRACT DISORDER
     Route: 048
     Dates: start: 20070101, end: 20120515
  2. AVODART [Concomitant]
     Indication: URINARY TRACT DISORDER
     Route: 048
     Dates: start: 20080101, end: 20120515
  3. LANTUS [Suspect]
     Dosage: DOSE- 36 IU IN THE MORNING AND 38 IU AT BEDTIME
     Route: 058
     Dates: start: 20070101
  4. ATENOLOL [Concomitant]
     Indication: HYPERTENSION
     Route: 048
     Dates: start: 20090101
  5. CLONIDINE [Concomitant]
     Indication: HYPERTENSION
     Route: 048
     Dates: start: 20090101
  6. ALTACE [Suspect]
     Indication: HYPERTENSION
     Route: 048
     Dates: start: 20090101
  7. AMLODIPINE BESYLATE [Concomitant]
     Route: 048
     Dates: start: 20090101
  8. NOVORAPID [Concomitant]
     Dosage: 12IU BREAKFAST, 6 IU LUNCH. 10 IU SUPPER
     Route: 058
     Dates: start: 20070101
  9. AVALIDE [Suspect]
     Indication: HYPERTENSION
     Route: 048
     Dates: start: 20090101
  10. TESTIM [Suspect]
     Indication: HORMONE REPLACEMENT THERAPY
     Route: 061
     Dates: start: 20110701, end: 20111212

REACTIONS (2)
  - DRUG ADMINISTRATION ERROR [None]
  - PROSTATE CANCER [None]
